FAERS Safety Report 6061879-3 (Version None)
Quarter: 2009Q1

REPORT INFORMATION
  Report Type: 
  Country: None (occurrence: None)
  Receive Date: 20090202
  Receipt Date: 20090120
  Transmission Date: 20090719
  Serious: Yes (Disabling)
  Sender: FDA-Public Use
  Company Number: PHHY2009FR01350

PATIENT
  Sex: Male

DRUGS (4)
  1. STERDEX (NVO) [Suspect]
     Indication: EYELID OPERATION
     Dosage: 2 APPLICATIONS PER DAY
     Dates: start: 20081125, end: 20081130
  2. STERDEX (NVO) [Suspect]
     Dosage: 1 APPLICATION PER DAY
     Dates: start: 20081212, end: 20081219
  3. SERUM PHYSIOLOGICAL [Concomitant]
  4. PYOSTACINE [Concomitant]
     Indication: EYELID INFECTION
     Dosage: 500 MG, TID
     Dates: start: 20081212, end: 20081219

REACTIONS (3)
  - HEADACHE [None]
  - IMPAIRED DRIVING ABILITY [None]
  - STRABISMUS [None]
